FAERS Safety Report 18493092 (Version 3)
Quarter: 2020Q4

REPORT INFORMATION
  Report Type: Report from Study
  Country: SE (occurrence: SE)
  Receive Date: 20201111
  Receipt Date: 20201231
  Transmission Date: 20210114
  Serious: Yes (Hospitalization, Other)
  Sender: FDA-Public Use
  Company Number: SE-SHIRE-SE201843155

PATIENT
  Age: 11 Year
  Sex: Male
  Weight: 35 kg

DRUGS (28)
  1. AZITROMAX [Concomitant]
     Active Substance: AZITHROMYCIN ANHYDROUS
     Indication: BRONCHITIS CHRONIC
     Dosage: 250 MILLIGRAM
     Route: 048
     Dates: start: 20161028
  2. PREDNISOLON [PREDNISOLONE] [Concomitant]
     Active Substance: PREDNISOLONE
     Dosage: 20 MILLIGRAM, QD
     Route: 048
     Dates: start: 20181203, end: 20190304
  3. PENTASA [Concomitant]
     Active Substance: MESALAMINE
     Dosage: 1.25 GRAM (750 MG IN THE MORNING AND 500 MG IN THE EVENING)
     Route: 048
     Dates: start: 20181223, end: 20181225
  4. FLUTICASONE FUROATE [Concomitant]
     Active Substance: FLUTICASONE FUROATE
     Indication: BRONCHITIS CHRONIC
     Dosage: 92 MILLIGRAM, QD
     Route: 055
     Dates: start: 20161213
  5. PENTASA [Concomitant]
     Active Substance: MESALAMINE
     Indication: INFLAMMATORY BOWEL DISEASE
     Dosage: 125 MILLIGRAM, QD
     Route: 048
     Dates: start: 20181208, end: 20181210
  6. PENTASA [Concomitant]
     Active Substance: MESALAMINE
     Dosage: 250 MILLIGRAM, QD
     Route: 048
     Dates: start: 20181211, end: 20181213
  7. PENTASA [Concomitant]
     Active Substance: MESALAMINE
     Dosage: 250 MILLIGRAM, BID
     Route: 048
     Dates: start: 20181214, end: 20181216
  8. PENTASA [Concomitant]
     Active Substance: MESALAMINE
     Dosage: 1.50 GRAM (1 G IN THE MORNING AND 500 MG IN THE EVENING)
     Route: 048
     Dates: start: 20181226, end: 20181228
  9. PENTASA [Concomitant]
     Active Substance: MESALAMINE
     Dosage: 1.75 GRAM (1 G IN THE MORNING AND 750 MG IN THE EVENING)
     Route: 048
     Dates: start: 20181229, end: 20181231
  10. PENTASA [Concomitant]
     Active Substance: MESALAMINE
     Dosage: 1 GRAM, BID
     Route: 048
     Dates: start: 20190101
  11. AZITROMAX [Concomitant]
     Active Substance: AZITHROMYCIN ANHYDROUS
     Indication: INFECTION PROPHYLAXIS
  12. IBUPROFEN. [Concomitant]
     Active Substance: IBUPROFEN
     Indication: DERMATITIS
     Dosage: 200 MILLIGRAM, TID
     Route: 048
     Dates: start: 20171117, end: 20190106
  13. ALVEDON [Concomitant]
     Active Substance: ACETAMINOPHEN
     Indication: PYREXIA
     Dosage: 200 MILLIGRAM, QID
     Route: 048
     Dates: start: 20180123, end: 20180124
  14. IBUPROFEN. [Concomitant]
     Active Substance: IBUPROFEN
     Dosage: 200 MILLIGRAM, Q4HR
     Route: 048
     Dates: start: 20190107, end: 20190110
  15. AMOXICILLIN. [Concomitant]
     Active Substance: AMOXICILLIN
     Dosage: 750 UNK
     Route: 048
     Dates: start: 20190108, end: 20190115
  16. HUMAN IMMUNOGLOBULIN; HYALURONIDASE [Suspect]
     Active Substance: HUMAN IMMUNOGLOBULIN G\HYALURONIDASE RECOMBINANT HUMAN
     Indication: HYPOGAMMAGLOBULINAEMIA
     Dosage: 30 GRAM, 4/WEEK
     Route: 058
     Dates: start: 20171228, end: 20181004
  17. PREDNISOLON [PREDNISOLONE] [Concomitant]
     Active Substance: PREDNISOLONE
     Indication: INFLAMMATORY BOWEL DISEASE
     Dosage: 20 MILLIGRAM, BID
     Route: 048
     Dates: start: 20181105, end: 20181202
  18. HUMAN IMMUNOGLOBULIN; HYALURONIDASE [Suspect]
     Active Substance: HUMAN IMMUNOGLOBULIN G\HYALURONIDASE RECOMBINANT HUMAN
     Dosage: 840.34 MILLIGRAM/KILOGRAM
     Route: 058
     Dates: start: 20171120, end: 20171120
  19. VILANTEROL [Concomitant]
     Active Substance: VILANTEROL TRIFENATATE
     Indication: BRONCHITIS CHRONIC
     Dosage: 22 MICROGRAM, QD
     Route: 055
     Dates: start: 20161213
  20. PENTASA [Concomitant]
     Active Substance: MESALAMINE
     Dosage: 500 MILLIGRAM, BID
     Route: 048
     Dates: start: 20181220, end: 20181222
  21. IBUPROFEN. [Concomitant]
     Active Substance: IBUPROFEN
     Dosage: 200 MILLIGRAM, Q4HR
     Route: 048
     Dates: start: 20190107, end: 20190110
  22. AMOXICILLIN. [Concomitant]
     Active Substance: AMOXICILLIN
     Indication: PYREXIA
     Dosage: 750 MILLIGRAM, TID
     Route: 048
     Dates: start: 20180125, end: 20180201
  23. PENTASA [Concomitant]
     Active Substance: MESALAMINE
     Dosage: 750 MILLIGRAM (500 MG IN THE MORNING AND 250 MG IN THE EVENING)
     Route: 048
     Dates: start: 20181217, end: 20181219
  24. HUMAN IMMUNOGLOBULIN; HYALURONIDASE [Suspect]
     Active Substance: HUMAN IMMUNOGLOBULIN G\HYALURONIDASE RECOMBINANT HUMAN
     Dosage: 840.34 MILLIGRAM/KILOGRAM
     Route: 058
     Dates: start: 20171228, end: 20171228
  25. AZITHROMYCIN ANHYDROUS. [Concomitant]
     Active Substance: AZITHROMYCIN ANHYDROUS
     Indication: INFECTION
     Dosage: 250 MILLIGRAM
     Route: 048
     Dates: start: 20161028
  26. LIDOKAIN [LIDOCAINE] [Concomitant]
     Indication: LOCAL ANAESTHESIA
     Dosage: 25 MILLIGRAM
     Route: 061
     Dates: start: 2007
  27. PRILOCAINE [Concomitant]
     Active Substance: PRILOCAINE
     Indication: LOCAL ANAESTHESIA
     Dosage: 25 MILLIGRAM
     Route: 061
     Dates: start: 2007
  28. METOJECT [Concomitant]
     Active Substance: METHOTREXATE SODIUM
     Indication: INFLAMMATORY BOWEL DISEASE
     Dosage: 20 MILLIGRAM, 1/WEEK
     Route: 058
     Dates: start: 20190314

REACTIONS (3)
  - Pyrexia [Recovered/Resolved]
  - Inflammatory bowel disease [Recovered/Resolved]
  - General physical health deterioration [Not Recovered/Not Resolved]

NARRATIVE: CASE EVENT DATE: 20180123
